FAERS Safety Report 23198213 (Version 1)
Quarter: 2023Q4

REPORT INFORMATION
  Report Type: Spontaneous
  Country: VI (occurrence: None)
  Receive Date: 20231117
  Receipt Date: 20231117
  Transmission Date: 20240110
  Serious: No
  Sender: FDA-Public Use
  Company Number: None

PATIENT
  Age: 73 Year
  Sex: Female
  Weight: 48.15 kg

DRUGS (3)
  1. ESTRADIOL [Suspect]
     Active Substance: ESTRADIOL
     Indication: Vulvovaginal dryness
     Dosage: OTHER QUANTITY : 42.5 APPLICATOR;?FREQUENCY : AT BEDTIME;?
     Route: 067
     Dates: start: 20230915, end: 20231101
  2. ESTRADIOL [Suspect]
     Active Substance: ESTRADIOL
     Indication: Dyspareunia
  3. VALACYCLOVIR [Concomitant]
     Active Substance: VALACYCLOVIR HYDROCHLORIDE

REACTIONS (2)
  - Vulvovaginal discomfort [None]
  - Application site pruritus [None]

NARRATIVE: CASE EVENT DATE: 20230915
